FAERS Safety Report 6679922-7 (Version None)
Quarter: 2010Q2

REPORT INFORMATION
  Report Type: 
  Country: None (occurrence: None)
  Receive Date: 20100413
  Receipt Date: 20100405
  Transmission Date: 20101027
  Serious: Yes (Hospitalization)
  Sender: FDA-Public Use
  Company Number: PH-ABBOTT-10P-128-0636449-00

PATIENT
  Age: 66 Year
  Sex: Female

DRUGS (2)
  1. REDUCTIL 10MG [Suspect]
     Indication: WEIGHT CONTROL
     Route: 048
  2. IRBESARTAN [Concomitant]
     Indication: HYPERTENSION
     Route: 048

REACTIONS (4)
  - ANAPHYLACTOID REACTION [None]
  - HYPOTENSION [None]
  - PALPITATIONS [None]
  - SWELLING FACE [None]
